FAERS Safety Report 7767401-5 (Version None)
Quarter: 2011Q3

REPORT INFORMATION
  Report Type: 
  Country: None (occurrence: None)
  Receive Date: 20110922
  Receipt Date: 20110706
  Transmission Date: 20111222
  Serious: No
  Sender: FDA-Public Use
  Company Number: US-ASTRAZENECA-2011SE40263

PATIENT
  Age: 50 Year
  Sex: Female
  Weight: 123.8 kg

DRUGS (10)
  1. COUMADIN [Concomitant]
  2. VISTARIL [Concomitant]
  3. LASIX [Concomitant]
  4. REGLAN [Concomitant]
  5. TAMOXIFEN CITRATE [Concomitant]
  6. DEPAKOTE [Concomitant]
  7. CELEXA [Concomitant]
  8. PRILOSEC [Concomitant]
  9. SEROQUEL XR [Suspect]
     Indication: SCHIZOAFFECTIVE DISORDER
     Route: 048
  10. LOVASTATIN [Concomitant]

REACTIONS (4)
  - AGITATION [None]
  - IRRITABILITY [None]
  - INSOMNIA [None]
  - DRUG DOSE OMISSION [None]
